FAERS Safety Report 5071579-4 (Version None)
Quarter: 2006Q3

REPORT INFORMATION
  Report Type: 
  Country: None (occurrence: None)
  Receive Date: 20060803
  Receipt Date: 20060803
  Transmission Date: 20061208
  Serious: Yes (Hospitalization)
  Sender: FDA-Public Use
  Company Number: None

PATIENT
  Age: 74 Year
  Sex: Male

DRUGS (8)
  1. DIGOXIN [Suspect]
     Indication: CARDIAC FAILURE CONGESTIVE
     Dosage: 0.25 MG DAILY PO
     Route: 048
     Dates: start: 20040901, end: 20060320
  2. DIGOXIN [Suspect]
     Indication: SUPRAVENTRICULAR TACHYCARDIA
     Dosage: 0.25 MG DAILY PO
     Route: 048
     Dates: start: 20040901, end: 20060320
  3. ITRACONAZOLE [Suspect]
     Indication: ONYCHOMYCOSIS
     Dosage: 200 MG DAILY PO
     Route: 048
     Dates: start: 20060215, end: 20060320
  4. NORVASC [Concomitant]
  5. TOPROL-XL [Concomitant]
  6. GEMFIBROZIL [Concomitant]
  7. COZAAR [Concomitant]
  8. ASPIRIN [Concomitant]

REACTIONS (2)
  - DRUG INTERACTION [None]
  - THERAPEUTIC AGENT TOXICITY [None]
